FAERS Safety Report 20455865 (Version 18)
Quarter: 2025Q4

REPORT INFORMATION
  Report Type: Spontaneous
  Country: US (occurrence: US)
  Receive Date: 20220210
  Receipt Date: 20251209
  Transmission Date: 20260117
  Serious: Yes (Hospitalization, Other)
  Sender: PFIZER
  Company Number: US-PFIZER INC-202101596363

PATIENT
  Age: 55 Year
  Sex: Female
  Weight: 54.9 kg

DRUGS (20)
  1. IBRANCE [Suspect]
     Active Substance: PALBOCICLIB
     Indication: Breast cancer metastatic
     Dosage: 125 MG, CYCLIC (2 WEEKS ON, THEN 2 WEEKS OFF)
  2. IBRANCE [Suspect]
     Active Substance: PALBOCICLIB
     Indication: Breast cancer female
     Dosage: 125 MG, CYCLIC (TABLET EVERY DAY ON DAYS 1-21 EVERY 28 DAY CYCLE)
     Route: 048
  3. IBRANCE [Suspect]
     Active Substance: PALBOCICLIB
     Dosage: 125 MG, CYCLIC (1 TAB PO QD 14 DAYS ON 14 DAY OFF; #21 (35DS))
     Route: 048
  4. IBRANCE [Suspect]
     Active Substance: PALBOCICLIB
     Dosage: 125 MG, CYCLIC (4 DAYS ON 14 DAY OFF)
  5. IBRANCE [Suspect]
     Active Substance: PALBOCICLIB
     Dosage: 125 MG, CYCLIC (1 WEEK ON AND 1 WEEK OFF)
  6. IBRANCE [Suspect]
     Active Substance: PALBOCICLIB
     Dosage: 125 MG, CYCLIC (1 TAB DAILY ON D1-14, EVERY 28 DAY CYCLE)
     Route: 048
  7. IBRANCE [Suspect]
     Active Substance: PALBOCICLIB
     Dosage: 125 MG
  8. IBRANCE [Suspect]
     Active Substance: PALBOCICLIB
     Dosage: 2 WEEK ON/2 WEEK OFF BASED ON TAKING/TAKE DAILY FOR DAYS 1-14/28 DAY CYCLE
     Route: 048
     Dates: start: 20240909, end: 20240915
  9. IBRANCE [Suspect]
     Active Substance: PALBOCICLIB
     Dosage: 125 MG, CYCLIC (1 TABLET DAILY ON DAYS 1-14 OF 28-DAY)
  10. ANASTROZOLE [Concomitant]
     Active Substance: ANASTROZOLE
     Indication: Breast cancer
     Dosage: 1 MG, DAILY
  11. SUBOXONE [Concomitant]
     Active Substance: BUPRENORPHINE HYDROCHLORIDE\NALOXONE HYDROCHLORIDE
     Dosage: REASON FOR TAKING: PSUDO HX/DOSE: 12-3
  12. DULOXETINE [Concomitant]
     Active Substance: DULOXETINE
     Indication: Neuropathy peripheral
     Dosage: 40 MG, DAILY
  13. DULOXETINE [Concomitant]
     Active Substance: DULOXETINE
     Indication: Depression
  14. SEROQUEL [Concomitant]
     Active Substance: QUETIAPINE FUMARATE
     Indication: Mania
     Dosage: NIGHTLY
  15. SEROQUEL [Concomitant]
     Active Substance: QUETIAPINE FUMARATE
     Indication: Affective disorder
  16. SPIRIVA [Concomitant]
     Active Substance: TIOTROPIUM BROMIDE MONOHYDRATE
     Dosage: UNK
  17. CLARITHROMYCIN [Concomitant]
     Active Substance: CLARITHROMYCIN
     Dosage: 100 MG, 1X/DAY (100 MG, QD)
  18. FOSFOMYCIN [Concomitant]
     Active Substance: FOSFOMYCIN
     Dosage: 3 G, 1X/DAY (3 G, QD)
  19. CEFIXIME [Concomitant]
     Active Substance: CEFIXIME
     Dosage: UNK, AS NEEDED (PRN)
  20. ZYRTEC [Concomitant]
     Active Substance: CETIRIZINE HYDROCHLORIDE
     Dosage: UNK, 1X/DAY (QHS (BEFORE BED))

REACTIONS (9)
  - Resuscitation [Recovering/Resolving]
  - Urinary tract infection [Recovered/Resolved]
  - Cytopenia [Unknown]
  - Delirium [Unknown]
  - Mental status changes [Recovered/Resolved]
  - Brain fog [Unknown]
  - Cognitive disorder [Unknown]
  - Off label use [Unknown]
  - Product dose omission in error [Unknown]

NARRATIVE: CASE EVENT DATE: 20240912
